FAERS Safety Report 17433448 (Version 1)
Quarter: 2020Q1

REPORT INFORMATION
  Report Type: Spontaneous
  Country: LT (occurrence: LT)
  Receive Date: 20200219
  Receipt Date: 20200219
  Transmission Date: 20200409
  Serious: Yes (Life-Threatening, Hospitalization)
  Sender: FDA-Public Use
  Company Number: LT-TEVA-2020-LT-1181357

PATIENT
  Age: 57 Year
  Sex: Male
  Weight: 104 kg

DRUGS (19)
  1. CHLORPROTHIXENE [Suspect]
     Active Substance: CHLORPROTHIXENE
     Indication: DELIRIUM
  2. DIAZEPAM SOLUTION FOR INJECTION [Suspect]
     Active Substance: DIAZEPAM
     Indication: ALCOHOL ABUSE
     Dosage: 6 ML
     Route: 030
     Dates: start: 20191217, end: 20191219
  3. ENALAPRIL [Suspect]
     Active Substance: ENALAPRIL
     Indication: HYPERTENSION
     Dosage: 20 MILLIGRAM
     Route: 048
     Dates: start: 20191218, end: 20191219
  4. SILIMARIN [Suspect]
     Active Substance: HERBALS\SILYBUM MARIANUM WHOLE
     Indication: HEPATITIS ALCOHOLIC
     Dosage: 67.5 MILLIGRAM
     Route: 048
     Dates: start: 20191218, end: 20191219
  5. TIAPRIDE [Suspect]
     Active Substance: TIAPRIDE
     Indication: PSYCHOMOTOR HYPERACTIVITY
     Dosage: 300 MILLIGRAM
     Route: 048
     Dates: start: 20191219, end: 20191219
  6. RINGER ACETATE FRESENIUS [Suspect]
     Active Substance: CALCIUM CHLORIDE\MAGNESIUM CHLORIDE\POTASSIUM CHLORIDE\SODIUM ACETATE\SODIUM CHLORIDE
     Indication: DETOXIFICATION
     Dosage: 500 ML
     Route: 040
     Dates: start: 20191218, end: 20191218
  7. HALOPERIDOL - SOLUTION FOR INJECTION [Suspect]
     Active Substance: HALOPERIDOL
     Indication: ALCOHOL ABUSE
  8. HALOPERIDOL - SOLUTION FOR INJECTION [Suspect]
     Active Substance: HALOPERIDOL
     Indication: MENTAL DISORDER
  9. DIAZEPAM SOLUTION FOR INJECTION [Suspect]
     Active Substance: DIAZEPAM
     Indication: DELIRIUM
  10. DIAZEPAM SOLUTION FOR INJECTION [Suspect]
     Active Substance: DIAZEPAM
     Indication: MENTAL DISORDER
  11. HALOPERIDOL - SOLUTION FOR INJECTION [Suspect]
     Active Substance: HALOPERIDOL
     Indication: DELIRIUM
     Dosage: 5 MILLIGRAM??HALOPERIDOL - SOLUTION FOR INJECTION
     Route: 030
     Dates: start: 20191217, end: 20191218
  12. MAGNESIUM SULFATE. [Suspect]
     Active Substance: MAGNESIUM SULFATE
     Indication: DETOXIFICATION
     Dosage: 500 ML
     Route: 040
     Dates: start: 20191218, end: 20191218
  13. AMLODIPIN [Suspect]
     Active Substance: AMLODIPINE BESYLATE
     Indication: HYPERTENSION
     Dosage: 5 MILLIGRAM
     Route: 048
     Dates: start: 20191218, end: 20191218
  14. METOPROLOL - TABLET [Suspect]
     Active Substance: METOPROLOL
     Indication: HYPERTENSION
     Dosage: 50 MILLIGRAM
     Route: 048
     Dates: start: 20191218, end: 20191219
  15. SODIUM CHLORIDE B. BRAUN 0,9 % [Suspect]
     Active Substance: SODIUM CHLORIDE
     Indication: DETOXIFICATION
     Dosage: 500 ML
     Route: 040
     Dates: start: 20191218, end: 20191218
  16. CHLORPROTHIXENE [Suspect]
     Active Substance: CHLORPROTHIXENE
     Indication: MENTAL DISORDER
  17. THROMBO ASS 100 MG [Suspect]
     Active Substance: ASPIRIN
     Indication: HYPERTENSION
     Route: 048
     Dates: start: 20190117, end: 20191218
  18. TRIHEXYPHENIDYL [Suspect]
     Active Substance: TRIHEXYPHENIDYL
     Dosage: 4 MILLIGRAM
     Route: 048
     Dates: start: 20191219, end: 20191219
  19. CHLORPROTHIXENE [Suspect]
     Active Substance: CHLORPROTHIXENE
     Indication: ALCOHOL ABUSE
     Dosage: 50 MILLIGRAM
     Route: 048
     Dates: start: 20191217, end: 20191217

REACTIONS (2)
  - Neck pain [Recovered/Resolved]
  - Respiratory disorder [Recovered/Resolved]

NARRATIVE: CASE EVENT DATE: 20191219
